FAERS Safety Report 26131855 (Version 1)
Quarter: 2025Q4

REPORT INFORMATION
  Report Type: Report from Study
  Country: EU (occurrence: EU)
  Receive Date: 20251208
  Receipt Date: 20251208
  Transmission Date: 20260118
  Serious: Yes (Hospitalization, Other)
  Sender: PFIZER
  Company Number: EU-AMGEN-DEUNI2025138322

PATIENT
  Age: 37 Year
  Sex: Female

DRUGS (1)
  1. ADALIMUMAB [Suspect]
     Active Substance: ADALIMUMAB
     Indication: Rheumatoid arthritis
     Dosage: 40 MG, Q2 WEEKS
     Route: 065

REACTIONS (3)
  - Parapharyngeal space infection [Not Recovered/Not Resolved]
  - Cellulitis pharyngeal [Not Recovered/Not Resolved]
  - Peritonsillitis [Not Recovered/Not Resolved]

NARRATIVE: CASE EVENT DATE: 20250626
